FAERS Safety Report 17813622 (Version 1)
Quarter: 2020Q2

REPORT INFORMATION
  Report Type: Report from Study
  Country: EG (occurrence: EG)
  Receive Date: 20200521
  Receipt Date: 20200521
  Transmission Date: 20200714
  Serious: Yes (Death)
  Sender: FDA-Public Use
  Company Number: NVSC2020EG139596

PATIENT
  Sex: Female

DRUGS (2)
  1. TASIGNA [Suspect]
     Active Substance: NILOTINIB
     Indication: CHRONIC MYELOID LEUKAEMIA
     Dosage: UNK UNK, QD
     Route: 065
     Dates: start: 2018
  2. GLIVEC [Suspect]
     Active Substance: IMATINIB MESYLATE
     Indication: CHRONIC MYELOID LEUKAEMIA
     Dosage: UNK UNK, QD (5 YEARS AGO)
     Route: 065
     Dates: end: 2018

REACTIONS (2)
  - Cytogenetic analysis abnormal [Recovered/Resolved]
  - Splenomegaly [Fatal]

NARRATIVE: CASE EVENT DATE: 2018
